FAERS Safety Report 18115138 (Version 4)
Quarter: 2025Q2

REPORT INFORMATION
  Report Type: Report from Study
  Country: CA (occurrence: CA)
  Receive Date: 20200805
  Receipt Date: 20250523
  Transmission Date: 20250717
  Serious: Yes (Life-Threatening, Other)
  Sender: MYLAN
  Company Number: CA-PFIZER INC-2020295819

PATIENT
  Age: 40 Year
  Sex: Female

DRUGS (13)
  1. GABAPENTIN [Interacting]
     Active Substance: GABAPENTIN
     Indication: Migraine
  2. GABAPENTIN [Interacting]
     Active Substance: GABAPENTIN
  3. GABAPENTIN [Interacting]
     Active Substance: GABAPENTIN
  4. GABAPENTIN [Interacting]
     Active Substance: GABAPENTIN
     Dosage: 900 MILLIGRAM, QD (1 EVERY 1 DAY)
  5. AIMOVIG [Interacting]
     Active Substance: ERENUMAB-AOOE
     Indication: Migraine
  6. AIMOVIG [Interacting]
     Active Substance: ERENUMAB-AOOE
  7. AIMOVIG [Interacting]
     Active Substance: ERENUMAB-AOOE
     Dosage: 140 MILLIGRAM, MONTHLY (1 EVERY 1 MONTHS)
  8. AIMOVIG [Interacting]
     Active Substance: ERENUMAB-AOOE
     Indication: Migraine
  9. TOPAMAX [Interacting]
     Active Substance: TOPIRAMATE
     Indication: Product used for unknown indication
  10. ZOPICLONE [Interacting]
     Active Substance: ZOPICLONE
     Indication: Product used for unknown indication
  11. TOPIRAMATE [Interacting]
     Active Substance: TOPIRAMATE
     Indication: Product used for unknown indication
  12. TOPIRAMATE [Interacting]
     Active Substance: TOPIRAMATE
  13. PANTOPRAZOLE [Concomitant]
     Active Substance: PANTOPRAZOLE
     Indication: Product used for unknown indication

REACTIONS (20)
  - Aphasia [Not Recovered/Not Resolved]
  - Blood pressure increased [Not Recovered/Not Resolved]
  - Feeling hot [Not Recovered/Not Resolved]
  - Hyperhidrosis [Not Recovered/Not Resolved]
  - Gastrointestinal haemorrhage [Not Recovered/Not Resolved]
  - Panic attack [Not Recovered/Not Resolved]
  - Osteitis [Not Recovered/Not Resolved]
  - Peptic ulcer perforation [Not Recovered/Not Resolved]
  - Sepsis [Not Recovered/Not Resolved]
  - Epigastric discomfort [Recovered/Resolved]
  - Feeling abnormal [Recovered/Resolved]
  - Brain fog [Not Recovered/Not Resolved]
  - Concomitant disease aggravated [Not Recovered/Not Resolved]
  - Migraine [Not Recovered/Not Resolved]
  - Amnesia [Not Recovered/Not Resolved]
  - Constipation [Recovered/Resolved]
  - Diarrhoea [Not Recovered/Not Resolved]
  - Mental impairment [Recovered/Resolved]
  - Drug interaction [Not Recovered/Not Resolved]
  - Drug ineffective [Recovered/Resolved]
